FAERS Safety Report 15850713 (Version 2)
Quarter: 2019Q1

REPORT INFORMATION
  Report Type: Spontaneous
  Country: JP (occurrence: JP)
  Receive Date: 20190121
  Receipt Date: 20190205
  Transmission Date: 20190417
  Serious: Yes (Death, Other)
  Sender: FDA-Public Use
  Company Number: JP-ALLERGAN-1859819US

PATIENT
  Age: 80 Year
  Sex: Female

DRUGS (1)
  1. BOTOX [Suspect]
     Active Substance: ONABOTULINUMTOXINA
     Indication: MUSCLE SPASMS
     Dosage: 360 IU, SINGLE
     Route: 030
     Dates: start: 20180920, end: 20180920

REACTIONS (5)
  - Nasopharyngitis [Unknown]
  - Vomiting [Unknown]
  - Asphyxia [Fatal]
  - Sputum increased [Unknown]
  - Aspiration [Unknown]

NARRATIVE: CASE EVENT DATE: 2018
